FAERS Safety Report 16907342 (Version 7)
Quarter: 2020Q3

REPORT INFORMATION
  Report Type: Report from Study
  Country: None (occurrence: NL)
  Receive Date: 20191011
  Receipt Date: 20200701
  Transmission Date: 20201102
  Serious: Yes (Death, Life-Threatening, Other)
  Sender: FDA-Public Use
  Company Number: NL-ABBVIE-17K-114-1985049-00

PATIENT
  Age: 78 Year
  Sex: Female

DRUGS (7)
  1. DUODOPA [Suspect]
     Active Substance: CARBIDOPA\LEVODOPA
     Dosage: MD: 9.5, CD: 3.3, CD AFTER 12PM: 3.8, ED: 2.2
     Route: 050
  2. DUODOPA [Suspect]
     Active Substance: CARBIDOPA\LEVODOPA
     Dosage: MD 9.5 CD 3.1 ED 2.2
     Route: 050
     Dates: end: 20200624
  3. MOVICOLON [Concomitant]
     Active Substance: POLYETHYLENE GLYCOL 3350\POTASSIUM CHLORIDE\SODIUM BICARBONATE\SODIUM CHLORIDE
     Indication: ABNORMAL FAECES
  4. LEVODOPA [Concomitant]
     Active Substance: LEVODOPA
     Indication: PARKINSON^S DISEASE
     Route: 048
  5. DUODOPA [Suspect]
     Active Substance: CARBIDOPA\LEVODOPA
     Indication: PARKINSON^S DISEASE
     Dosage: MD:  9.5  CD: 3.3    ED:  2.2
     Route: 050
     Dates: start: 20130422
  6. DUODOPA [Suspect]
     Active Substance: CARBIDOPA\LEVODOPA
     Dosage: CONTINUOUS DOSE DECREASED FROM 3.3. TO 3.1
     Route: 050
  7. MORPHINE [Concomitant]
     Active Substance: MORPHINE
     Indication: PAIN
     Route: 058
     Dates: start: 20200217

REACTIONS (41)
  - Neoplasm malignant [Not Recovered/Not Resolved]
  - Aphasia [Not Recovered/Not Resolved]
  - Pain in extremity [Recovered/Resolved]
  - Taste disorder [Unknown]
  - Muscle rigidity [Not Recovered/Not Resolved]
  - Constipation [Not Recovered/Not Resolved]
  - Dyskinesia [Not Recovered/Not Resolved]
  - Stoma site discharge [Not Recovered/Not Resolved]
  - Death [Fatal]
  - Intentional product misuse [Not Recovered/Not Resolved]
  - Life expectancy shortened [Not Recovered/Not Resolved]
  - Fibroma [Not Recovered/Not Resolved]
  - Panic attack [Not Recovered/Not Resolved]
  - Memory impairment [Not Recovered/Not Resolved]
  - Frequent bowel movements [Not Recovered/Not Resolved]
  - Stoma site reaction [Recovered/Resolved]
  - Bradykinesia [Not Recovered/Not Resolved]
  - Confusional state [Not Recovered/Not Resolved]
  - Terminal state [Not Recovered/Not Resolved]
  - Abdominal neoplasm [Not Recovered/Not Resolved]
  - Hallucination [Not Recovered/Not Resolved]
  - Stress [Not Recovered/Not Resolved]
  - Fatigue [Not Recovered/Not Resolved]
  - Decreased appetite [Recovered/Resolved]
  - Hypokinesia [Unknown]
  - Orthostatic hypotension [Not Recovered/Not Resolved]
  - Stoma site infection [Recovered/Resolved]
  - Nausea [Unknown]
  - Decreased appetite [Not Recovered/Not Resolved]
  - Stoma site erythema [Not Recovered/Not Resolved]
  - Polyneuropathy [Not Recovered/Not Resolved]
  - Stoma site irritation [Recovering/Resolving]
  - On and off phenomenon [Not Recovered/Not Resolved]
  - Unintentional medical device removal [Unknown]
  - Fear [Not Recovered/Not Resolved]
  - Hypoaesthesia [Not Recovered/Not Resolved]
  - Weight decreased [Not Recovered/Not Resolved]
  - Hyperkinesia [Not Recovered/Not Resolved]
  - Depression [Not Recovered/Not Resolved]
  - Abdominal pain [Not Recovered/Not Resolved]
  - Pain [Not Recovered/Not Resolved]

NARRATIVE: CASE EVENT DATE: 20200624
